FAERS Safety Report 15059204 (Version 5)
Quarter: 2020Q2

REPORT INFORMATION
  Report Type: Spontaneous
  Country: US (occurrence: US)
  Receive Date: 20180625
  Receipt Date: 20200414
  Transmission Date: 20200713
  Serious: Yes (Hospitalization, Other)
  Sender: FDA-Public Use
  Company Number: US-SA-2018SA167164

PATIENT
  Age: 67 Year
  Sex: Male

DRUGS (1)
  1. AUBAGIO [Suspect]
     Active Substance: TERIFLUNOMIDE
     Indication: MULTIPLE SCLEROSIS
     Dosage: 14 MG, QD
     Route: 048
     Dates: start: 20180306

REACTIONS (7)
  - Depression [Unknown]
  - Mobility decreased [Recovering/Resolving]
  - Urinary tract infection [Unknown]
  - Calcinosis [Unknown]
  - Diabetes mellitus [Unknown]
  - Fall [Unknown]
  - Fatigue [Recovering/Resolving]

NARRATIVE: CASE EVENT DATE: 2018
